FAERS Safety Report 6684328-0 (Version None)
Quarter: 2010Q2

REPORT INFORMATION
  Report Type: 
  Country: None (occurrence: None)
  Receive Date: 20100416
  Receipt Date: 20100407
  Transmission Date: 20101027
  Serious: Yes (Hospitalization)
  Sender: FDA-Public Use
  Company Number: PHHO2010IT04572

PATIENT
  Sex: Male
  Weight: 92 kg

DRUGS (3)
  1. BENAZEPRIL HYDROCHLORIDE [Suspect]
     Indication: HYPERTENSION
  2. LASIX [Concomitant]
  3. TOTALIP [Concomitant]

REACTIONS (6)
  - BLOOD CREATININE INCREASED [None]
  - PERIPHERAL ARTERIAL OCCLUSIVE DISEASE [None]
  - PYREXIA [None]
  - RENAL IMPAIRMENT [None]
  - SKIN ULCER [None]
  - WOUND SEPSIS [None]
